FAERS Safety Report 22640020 (Version 1)
Quarter: 2023Q2

REPORT INFORMATION
  Report Type: Report from Study
  Country: CA (occurrence: CA)
  Receive Date: 20230626
  Receipt Date: 20230626
  Transmission Date: 20230722
  Serious: Yes (Other)
  Sender: FDA-Public Use
  Company Number: CA-002147023-NVSC2023CA140966

PATIENT
  Age: 55 Year
  Sex: Female

DRUGS (1)
  1. HYRIMOZ [Suspect]
     Active Substance: ADALIMUMAB-ADAZ
     Indication: Rheumatoid arthritis
     Dosage: 40 MG
     Route: 058
     Dates: start: 20220612

REACTIONS (8)
  - Psoriatic arthropathy [Unknown]
  - Musculoskeletal discomfort [Unknown]
  - Musculoskeletal stiffness [Unknown]
  - Photosensitivity reaction [Unknown]
  - Dry skin [Unknown]
  - Skin fissures [Unknown]
  - Joint swelling [Unknown]
  - Muscle spasms [Unknown]
